FAERS Safety Report 21623721 (Version 1)
Quarter: 2022Q4

REPORT INFORMATION
  Report Type: Spontaneous
  Country: US (occurrence: US)
  Receive Date: 20221121
  Receipt Date: 20221121
  Transmission Date: 20230113
  Serious: No
  Sender: FDA-Public Use
  Company Number: US-GE HEALTHCARE-2022CSU007255

PATIENT
  Age: 71 Year
  Sex: Female
  Weight: 73.923 kg

DRUGS (2)
  1. OMNIPAQUE [Suspect]
     Active Substance: IOHEXOL
     Indication: Computerised tomogram neck
     Dosage: 75 ML, SINGLE
     Route: 042
     Dates: start: 20221005, end: 20221005
  2. OMNIPAQUE [Suspect]
     Active Substance: IOHEXOL
     Indication: Neck mass

REACTIONS (2)
  - Pruritus [Unknown]
  - Urticaria [Unknown]

NARRATIVE: CASE EVENT DATE: 20221005
